FAERS Safety Report 8600534-X (Version None)
Quarter: 2012Q3

REPORT INFORMATION
  Report Type: 
  Country: None (occurrence: None)
  Receive Date: 20120808
  Receipt Date: 20120808
  Transmission Date: 20120928
  Serious: No
  Sender: FDA-Public Use
  Company Number: None

PATIENT
  Age: 85 Year
  Sex: Male
  Weight: 63.5036 kg

DRUGS (1)
  1. PRADAXA [Suspect]
     Dosage: 1 CAP AM + PM   AM + PM  SWALLOW
     Dates: start: 20111001, end: 20120521

REACTIONS (4)
  - SCAB [None]
  - ERYTHEMA [None]
  - SCRATCH [None]
  - HAEMORRHAGE [None]
